FAERS Safety Report 8190976-1 (Version None)
Quarter: 2012Q1

REPORT INFORMATION
  Report Type: 
  Country: None (occurrence: None)
  Receive Date: 20120307
  Receipt Date: 20111221
  Transmission Date: 20120608
  Serious: Yes (Death, Hospitalization)
  Sender: FDA-Public Use
  Company Number: US-ROCHE-GNE284489

PATIENT
  Sex: Male
  Weight: 97.61 kg

DRUGS (10)
  1. BACTROBAN [Concomitant]
     Indication: PRODUCT USED FOR UNKNOWN INDICATION
  2. LEXAPRO [Concomitant]
     Indication: DEPRESSION
  3. AZITHROMYCIN [Concomitant]
     Indication: PRODUCT USED FOR UNKNOWN INDICATION
  4. HYDROCODONE BITARTRATE AND ACETAMINOPHEN [Concomitant]
     Indication: PRODUCT USED FOR UNKNOWN INDICATION
  5. RAPTIVA [Suspect]
     Indication: PSORIASIS
     Dosage: 125 MG, 1/WEEK
     Dates: start: 20040501, end: 20090101
  6. HALOBETASOL [Concomitant]
     Indication: PRODUCT USED FOR UNKNOWN INDICATION
  7. OLUX FOAM [Concomitant]
     Indication: PRODUCT USED FOR UNKNOWN INDICATION
  8. AMOXICILLIN AND CLAVULANATE POTASSIUM [Concomitant]
     Indication: PRODUCT USED FOR UNKNOWN INDICATION
  9. FLUTICASONE PROPIONATE [Concomitant]
     Indication: PRODUCT USED FOR UNKNOWN INDICATION
  10. PRISTIQ [Concomitant]
     Indication: DEPRESSION

REACTIONS (11)
  - VIRAL INFECTION [None]
  - RENAL FAILURE ACUTE [None]
  - METABOLIC ACIDOSIS [None]
  - HYPOTENSION [None]
  - CAPILLARY LEAK SYNDROME [None]
  - HAEMOGLOBIN INCREASED [None]
  - MULTI-ORGAN FAILURE [None]
  - HAEMATOCRIT INCREASED [None]
  - HYPERVISCOSITY SYNDROME [None]
  - SEPSIS [None]
  - ACUTE MYOCARDIAL INFARCTION [None]
